FAERS Safety Report 22253193 (Version 3)
Quarter: 2023Q2

REPORT INFORMATION
  Report Type: Report from Study
  Country: KR (occurrence: KR)
  Receive Date: 20230426
  Receipt Date: 20230531
  Transmission Date: 20230722
  Serious: Yes (Hospitalization, Other)
  Sender: FDA-Public Use
  Company Number: KR-JNJFOC-20230437395

PATIENT
  Age: 73 Year
  Sex: Male
  Weight: 65.85 kg

DRUGS (40)
  1. TECLISTAMAB [Suspect]
     Active Substance: TECLISTAMAB
     Indication: Plasma cell myeloma
     Dosage: ONCE, STEP-UP DOSE-1, AND THE LAST ADMINISTRATION OF 1ST FULL DOSE WAS ON 06-FEB-2023
     Route: 058
     Dates: start: 20230130
  2. TECLISTAMAB [Suspect]
     Active Substance: TECLISTAMAB
     Dosage: ONCE, STEP-UP DOSE-2
     Route: 058
  3. TECLISTAMAB [Suspect]
     Active Substance: TECLISTAMAB
     Route: 058
  4. TECLISTAMAB [Suspect]
     Active Substance: TECLISTAMAB
     Dosage: THE LAST TREATMENT WAS ON 10-APR-2023, WHICH WAS C3D8
     Route: 058
     Dates: end: 20230410
  5. NOREPINEPHRINE BITARTRATE [Concomitant]
     Active Substance: NOREPINEPHRINE BITARTRATE
     Indication: Hypotension
     Route: 042
     Dates: start: 20230413, end: 20230413
  6. TRAMADOL HYDROCHLORIDE [Concomitant]
     Active Substance: TRAMADOL HYDROCHLORIDE
     Indication: Analgesic therapy
     Route: 042
     Dates: start: 20230413, end: 20230413
  7. TENEPLA M [Concomitant]
     Indication: Diabetes mellitus
     Dosage: HYPOGLYEMIC AGENT
     Route: 048
     Dates: start: 20230414, end: 20230421
  8. AMARYL [Concomitant]
     Active Substance: GLIMEPIRIDE
     Indication: Diabetes mellitus
     Route: 048
     Dates: start: 20230414, end: 20230416
  9. AMARYL [Concomitant]
     Active Substance: GLIMEPIRIDE
     Route: 048
     Dates: start: 20230421, end: 20230421
  10. METFORMIN HYDROCHLORIDE [Concomitant]
     Active Substance: METFORMIN HYDROCHLORIDE
     Indication: Diabetes mellitus
     Route: 048
     Dates: start: 20230414, end: 20230416
  11. METFORMIN HYDROCHLORIDE [Concomitant]
     Active Substance: METFORMIN HYDROCHLORIDE
     Route: 048
     Dates: start: 20230421, end: 20230421
  12. ACYCLOVIR [Concomitant]
     Active Substance: ACYCLOVIR
     Indication: Antiviral prophylaxis
     Route: 048
     Dates: start: 20230414
  13. HUMULIN R [Concomitant]
     Active Substance: INSULIN HUMAN
     Indication: Hyperglycaemia
     Route: 042
     Dates: start: 20230414, end: 20230414
  14. HUMULIN R [Concomitant]
     Active Substance: INSULIN HUMAN
     Route: 042
     Dates: start: 20230414, end: 20230414
  15. SODIUM CHLORIDE [Concomitant]
     Active Substance: SODIUM CHLORIDE
     Indication: Fluid replacement
     Route: 042
     Dates: start: 20230414, end: 20230414
  16. SODIUM CHLORIDE [Concomitant]
     Active Substance: SODIUM CHLORIDE
     Route: 042
     Dates: start: 20230416, end: 20230416
  17. FUROSEMIDE [Concomitant]
     Active Substance: FUROSEMIDE
     Indication: Diuretic therapy
     Route: 042
     Dates: start: 20230414, end: 20230416
  18. CALCIUM GLUCONATE [Concomitant]
     Active Substance: CALCIUM GLUCONATE
     Indication: Acid base balance
     Route: 042
     Dates: start: 20230414, end: 20230416
  19. MAGNESIUM SULFATE [Concomitant]
     Active Substance: MAGNESIUM SULFATE
     Indication: Acid base balance
     Route: 042
     Dates: start: 20230414, end: 20230414
  20. MAGNESIUM SULFATE [Concomitant]
     Active Substance: MAGNESIUM SULFATE
     Route: 042
     Dates: start: 20230416, end: 20230416
  21. NOREPINEPHRINE [Concomitant]
     Active Substance: NOREPINEPHRINE
     Indication: Hypotension
     Route: 042
     Dates: start: 20230414, end: 20230415
  22. NAK200 [Concomitant]
     Indication: Acid base balance
     Dosage: NAK200(K20MEQ/NS/100ML)
     Route: 042
     Dates: start: 20230414, end: 20230414
  23. PHOSTEN [Concomitant]
     Indication: Acid base balance
     Route: 042
     Dates: start: 20230415, end: 20230416
  24. TRANEXAMIC ACID [Concomitant]
     Active Substance: TRANEXAMIC ACID
     Indication: Prophylaxis
     Dosage: PROPHYLACTIC ANTIPLASMIN
     Route: 042
     Dates: start: 20230415, end: 20230415
  25. TRIMEBUTINE MALEATE [Concomitant]
     Active Substance: TRIMEBUTINE MALEATE
     Indication: Prophylaxis
     Dosage: POLYBUTINE SR TAB
     Route: 048
     Dates: start: 20230415, end: 20230416
  26. TRIMEBUTINE MALEATE [Concomitant]
     Active Substance: TRIMEBUTINE MALEATE
     Dosage: POLYBUTINE SR TAB
     Route: 048
     Dates: start: 20230421, end: 20230421
  27. ALVERIX [Concomitant]
     Indication: Prophylaxis
     Route: 048
     Dates: start: 20230415, end: 20230416
  28. ALVERIX [Concomitant]
     Route: 048
     Dates: start: 20230421, end: 20230421
  29. PROBIOTICS NOS [Concomitant]
     Active Substance: PROBIOTICS NOS
     Indication: Prophylaxis
     Route: 048
     Dates: start: 20230415, end: 20230416
  30. PROBIOTICS NOS [Concomitant]
     Active Substance: PROBIOTICS NOS
     Route: 048
     Dates: start: 20230421, end: 20230421
  31. DEXTROSE [Concomitant]
     Active Substance: DEXTROSE\DEXTROSE MONOHYDRATE
     Indication: Hypoglycaemia
     Route: 042
     Dates: start: 20230416, end: 20230416
  32. DEXTROSE [Concomitant]
     Active Substance: DEXTROSE\DEXTROSE MONOHYDRATE
     Route: 042
     Dates: start: 20230417, end: 20230417
  33. OMEPRAZOLE [Concomitant]
     Active Substance: OMEPRAZOLE
     Indication: Prophylaxis against gastrointestinal ulcer
     Route: 048
     Dates: start: 20230417, end: 20230417
  34. OMEPRAZOLE [Concomitant]
     Active Substance: OMEPRAZOLE
     Route: 048
     Dates: start: 20230418, end: 20230427
  35. MAGNESIUM [Concomitant]
     Active Substance: MAGNESIUM
     Indication: Vitamin supplementation
     Route: 048
     Dates: start: 20230418, end: 20230419
  36. BISOPROLOL FUMARATE [Concomitant]
     Active Substance: BISOPROLOL FUMARATE
     Indication: Prophylaxis
     Route: 048
     Dates: start: 20230419, end: 20230420
  37. NITROGLYCERIN [Concomitant]
     Active Substance: NITROGLYCERIN
     Indication: Angina pectoris
     Route: 060
     Dates: start: 20230421
  38. GLOBULIN [Concomitant]
     Indication: Prophylaxis
     Route: 042
     Dates: start: 20230511, end: 20230511
  39. BISOPROLOL FUMARATE [Concomitant]
     Active Substance: BISOPROLOL FUMARATE
     Indication: Prophylaxis
     Route: 048
     Dates: start: 20230518
  40. BISOPROLOL FUMARATE [Concomitant]
     Active Substance: BISOPROLOL FUMARATE
     Indication: Coronary artery disease

REACTIONS (8)
  - Pneumonia [Recovered/Resolved]
  - Azotaemia [Recovered/Resolved]
  - Blood creatine phosphokinase increased [Recovered/Resolved]
  - Troponin I increased [Recovered/Resolved]
  - Hypoalbuminaemia [Recovered/Resolved]
  - Atrial fibrillation [Unknown]
  - Neutrophil count decreased [Recovered/Resolved]
  - Anaemia [Recovered/Resolved]

NARRATIVE: CASE EVENT DATE: 20230413
